FAERS Safety Report 8439768-6 (Version None)
Quarter: 2012Q2

REPORT INFORMATION
  Report Type: 
  Country: None (occurrence: None)
  Receive Date: 20120611
  Receipt Date: 20120611
  Transmission Date: 20120825
  Serious: Yes (Other)
  Sender: FDA-Public Use
  Company Number: None

PATIENT
  Sex: Female

DRUGS (1)
  1. REVLIMID [Suspect]
     Indication: MULTIPLE MYELOMA
     Dosage: 15MG DAILY PO
     Route: 048
     Dates: start: 20120602, end: 20120601

REACTIONS (4)
  - OROPHARYNGEAL PAIN [None]
  - CHILLS [None]
  - PYREXIA [None]
  - DYSPHONIA [None]
